FAERS Safety Report 4838205-8 (Version None)
Quarter: 2005Q4

REPORT INFORMATION
  Report Type: 
  Country: None (occurrence: None)
  Receive Date: 20051123
  Receipt Date: 20051109
  Transmission Date: 20060501
  Serious: Yes (Other)
  Sender: FDA-Public Use
  Company Number: 8013347

PATIENT
  Sex: Female

DRUGS (2)
  1. KEPPRA [Suspect]
     Indication: CONVULSION
  2. TOPIRAMAT [Suspect]
     Indication: CONVULSION

REACTIONS (6)
  - ABORTION SPONTANEOUS [None]
  - DEPRESSION [None]
  - DRUG EXPOSURE DURING PREGNANCY [None]
  - MENTAL DISORDER [None]
  - UNINTENDED PREGNANCY [None]
  - WEIGHT DECREASED [None]
